FAERS Safety Report 9006663 (Version 1)
Quarter: 2013Q1

REPORT INFORMATION
  Report Type: Report from Study
  Country: HK (occurrence: HK)
  Receive Date: 20130110
  Receipt Date: 20130110
  Transmission Date: 20140127
  Serious: Yes (Death, Hospitalization)
  Sender: FDA-Public Use
  Company Number: HK-009507513-1301HKG000798

PATIENT
  Age: 63 Year
  Sex: Male
  Weight: 57.8 kg

DRUGS (12)
  1. TEMOZOLOMIDE [Suspect]
     Indication: GLIOBLASTOMA
     Dosage: UNK
     Route: 048
     Dates: start: 20100908, end: 20110125
  2. SEPTRIN [Concomitant]
     Dosage: 1900 MG, QOD
     Dates: start: 20101116, end: 20101223
  3. PHENOBARBITAL [Concomitant]
     Dosage: 80 MG, UNK
     Dates: start: 20100312
  4. PHENOBARBITAL [Concomitant]
     Dosage: 90 MG, UNK
     Dates: start: 20101031, end: 20101223
  5. PEPCIDINE [Concomitant]
     Dosage: 80 MG, QD
     Dates: start: 20101130, end: 20101230
  6. NAVOBAN [Concomitant]
     Dosage: 5 MG, QD
     Dates: start: 20101214, end: 20121014
  7. NAVOBAN [Concomitant]
     Dosage: 5 MG, QD
     Dates: start: 20101216, end: 20101218
  8. VITAMINS (UNSPECIFIED) [Concomitant]
     Dosage: 6 DF, QD
     Dates: start: 20101006, end: 20101223
  9. ESSENTIALE N [Concomitant]
     Dosage: 6 DF, QD
     Dates: start: 20101006, end: 20101223
  10. ALUMINUM HYDROXIDE (+) MAGNESIUM HYDROXIDE (+) SIMETHICONE [Concomitant]
  11. PHOSPHOLIPIDS (UNSPECIFIED) (+) VITAMINS (UNSPECIFIED) [Concomitant]
  12. PHOSPHATIDYL CHOLINE [Concomitant]

REACTIONS (3)
  - Lower respiratory tract infection [Fatal]
  - Muscular weakness [Recovered/Resolved]
  - Muscular weakness [Recovered/Resolved]
